FAERS Safety Report 14398326 (Version 1)
Quarter: 2018Q1

REPORT INFORMATION
  Report Type: Report from Study
  Country: None (occurrence: US)
  Receive Date: 20180116
  Receipt Date: 20180116
  Transmission Date: 20180509
  Serious: Yes (Hospitalization)
  Sender: FDA-Public Use
  Company Number: US-ABBVIE-17P-163-1900749-00

PATIENT
  Age: 6 Month
  Sex: Male
  Weight: 9.1 kg

DRUGS (2)
  1. SYNAGIS [Suspect]
     Active Substance: PALIVIZUMAB
     Indication: RESPIRATORY SYNCYTIAL VIRUS INFECTION
     Route: 030
     Dates: start: 20161213, end: 20171229
  2. SYNAGIS [Suspect]
     Active Substance: PALIVIZUMAB
     Route: 030

REACTIONS (7)
  - Diarrhoea [Unknown]
  - Calculus urethral [Unknown]
  - Dyspnoea [Unknown]
  - Complication associated with device [Unknown]
  - Chronic kidney disease [Unknown]
  - Vomiting [Unknown]
  - Hydronephrosis [Unknown]

NARRATIVE: CASE EVENT DATE: 201702
